FAERS Safety Report 5770306-2 (Version None)
Quarter: 2008Q2

REPORT INFORMATION
  Report Type: 
  Country: None (occurrence: None)
  Receive Date: 20080613
  Receipt Date: 20080424
  Transmission Date: 20081010
  Serious: No
  Sender: FDA-Public Use
  Company Number: US-ABBOTT-08P-163-0449010-00

PATIENT
  Sex: Female
  Weight: 64.922 kg

DRUGS (9)
  1. HUMIRA [Suspect]
     Indication: RHEUMATOID ARTHRITIS
     Route: 058
     Dates: start: 20080325
  2. RABEPRAZOLE SODIUM [Concomitant]
     Indication: DYSPEPSIA
     Route: 048
  3. AZATHIOPRINE [Concomitant]
     Indication: RHEUMATOID ARTHRITIS
     Route: 048
  4. CALCIUM WITH VITAMIN D [Concomitant]
     Indication: MINERAL SUPPLEMENTATION
     Dosage: 2-3 TABLETS PER DAY
     Route: 048
  5. CALCIUM WITH VITAMIN D [Concomitant]
     Indication: VITAMIN SUPPLEMENTATION
  6. CALCIUM WITH VITAMIN D [Concomitant]
     Route: 048
  7. CALCIUM WITH VITAMIN D [Concomitant]
  8. ALPRAZOLAM [Concomitant]
     Indication: ANXIETY
     Route: 048
  9. DULOXETINE HYDROCHLORIDE [Concomitant]
     Indication: DEPRESSION
     Route: 048

REACTIONS (2)
  - DRUG DOSE OMISSION [None]
  - PROCEDURAL COMPLICATION [None]
